FAERS Safety Report 5241477-1 (Version None)
Quarter: 2007Q1

REPORT INFORMATION
  Report Type: 
  Country: None (occurrence: None)
  Receive Date: 20070220
  Receipt Date: 20070214
  Transmission Date: 20070707
  Serious: Yes (Life-Threatening, Hospitalization)
  Sender: FDA-Public Use
  Company Number: US-GLAXOSMITHKLINE-A0639579A

PATIENT
  Sex: Male

DRUGS (2)
  1. LAMICTAL [Suspect]
     Dosage: 25MG TWICE PER DAY
     Route: 048
  2. GEODON [Concomitant]

REACTIONS (3)
  - ILL-DEFINED DISORDER [None]
  - MALAISE [None]
  - STEVENS-JOHNSON SYNDROME [None]
